FAERS Safety Report 4933690-5 (Version None)
Quarter: 2006Q1

REPORT INFORMATION
  Report Type: 
  Country: None (occurrence: None)
  Receive Date: 20060106
  Receipt Date: 20051107
  Transmission Date: 20060701
  Serious: No
  Sender: FDA-Public Use
  Company Number: 200512433BWH

PATIENT
  Age: 70 Year
  Sex: Male

DRUGS (17)
  1. LEVITRA [Suspect]
     Indication: ERECTILE DYSFUNCTION
     Dosage: SEE IMAGE
     Route: 048
     Dates: start: 20051104
  2. LEVITRA [Suspect]
     Indication: ERECTILE DYSFUNCTION
     Dosage: SEE IMAGE
     Route: 048
     Dates: start: 20051105
  3. LEVITRA [Suspect]
     Indication: ERECTILE DYSFUNCTION
     Dosage: SEE IMAGE
     Route: 048
     Dates: start: 20051106
  4. LEVITRA [Suspect]
     Dosage: SEE IMAGE
     Route: 048
     Dates: start: 20051106
  5. LEVITRA [Suspect]
     Dosage: 20 MG, QD, ORAL
     Route: 048
     Dates: start: 20051101
  6. COREG [Concomitant]
  7. DIGITEK [Concomitant]
  8. PLAVIX [Concomitant]
  9. ZETIA [Concomitant]
  10. ALLOPURINOL [Concomitant]
  11. K-TAB [Concomitant]
  12. LASIX [Concomitant]
  13. GLYBURIDE [Concomitant]
  14. METFORMIN [Concomitant]
  15. VASOTEC RPD [Concomitant]
  16. ASPIRIN [Concomitant]
  17. GABAPENTIN [Concomitant]

REACTIONS (3)
  - EJACULATION DISORDER [None]
  - EJACULATION FAILURE [None]
  - ERECTILE DYSFUNCTION [None]
